FAERS Safety Report 6207724-4 (Version None)
Quarter: 2009Q2

REPORT INFORMATION
  Report Type: 
  Country: None (occurrence: None)
  Receive Date: 20090522
  Receipt Date: 20090508
  Transmission Date: 20091009
  Serious: Yes (Other)
  Sender: FDA-Public Use
  Company Number: 8046292

PATIENT
  Age: 85 Year
  Sex: Female

DRUGS (1)
  1. KEPPRA [Suspect]
     Indication: CHARLES BONNET SYNDROME
     Dosage: 250 MG 2/D

REACTIONS (1)
  - HALLUCINATION [None]
